FAERS Safety Report 7550544-9 (Version None)
Quarter: 2011Q2

REPORT INFORMATION
  Report Type: 
  Country: None (occurrence: None)
  Receive Date: 20110616
  Receipt Date: 20110606
  Transmission Date: 20111010
  Serious: Yes (Hospitalization, Other)
  Sender: FDA-Public Use
  Company Number: US-AMGEN-USASP2011029036

PATIENT
  Age: 56 Year
  Sex: Female

DRUGS (2)
  1. ENBREL [Suspect]
     Indication: RHEUMATOID ARTHRITIS
     Dosage: 50 MG, QWK
     Dates: start: 20051101
  2. ENBREL [Suspect]
     Indication: FIBROMYALGIA

REACTIONS (8)
  - INJECTION SITE PAIN [None]
  - OSTEOARTHRITIS [None]
  - DEVICE COMPONENT ISSUE [None]
  - PAIN IN EXTREMITY [None]
  - FIBROMYALGIA [None]
  - MEDICAL DEVICE COMPLICATION [None]
  - FOOT DEFORMITY [None]
  - ARTHRALGIA [None]
